FAERS Safety Report 5455845-6 (Version None)
Quarter: 2007Q3

REPORT INFORMATION
  Report Type: 
  Country: None (occurrence: None)
  Receive Date: 20070918
  Receipt Date: 20070228
  Transmission Date: 20080115
  Serious: Yes (Other)
  Sender: FDA-Public Use
  Company Number: US-ASTRAZENECA-2006UW23490

PATIENT
  Age: 537 Month
  Sex: Male
  Weight: 112.3 kg

DRUGS (7)
  1. SEROQUEL [Suspect]
     Indication: PSYCHOTIC DISORDER
     Dosage: 25-100 MG
     Route: 048
     Dates: start: 20011116, end: 20061101
  2. SEROQUEL [Suspect]
     Indication: DEPRESSION
     Dosage: 25-100 MG
     Route: 048
     Dates: start: 20011116, end: 20061101
  3. SEROQUEL [Suspect]
     Indication: SCHIZOPHRENIA
     Dosage: 25-100 MG
     Route: 048
     Dates: start: 20011116, end: 20061101
  4. ZYPREXA [Suspect]
     Dates: start: 19990101, end: 20030101
  5. GEODON [Concomitant]
     Dates: start: 20030101
  6. TRILAFON [Concomitant]
     Dates: start: 19981101
  7. LEXAPRO [Concomitant]
     Dates: start: 20060101

REACTIONS (3)
  - BLOOD TRIGLYCERIDES INCREASED [None]
  - DIABETES MELLITUS [None]
  - PANCREATITIS [None]
